FAERS Safety Report 25964177 (Version 1)
Quarter: 2025Q4

REPORT INFORMATION
  Report Type: Report from Study
  Country: US (occurrence: US)
  Receive Date: 20251027
  Receipt Date: 20251027
  Transmission Date: 20260118
  Serious: Yes (Death)
  Sender: JAZZ
  Company Number: US-JAZZ PHARMACEUTICALS-2025-US-024383

PATIENT
  Age: 12 Year
  Sex: Female

DRUGS (11)
  1. EPIDIOLEX [Suspect]
     Active Substance: CANNABIDIOL
     Indication: Lennox-Gastaut syndrome
     Dosage: 5 MILLILITER, BID, TAKE 5 MILLILITER BY GASTROSTOMY TUBE IN THE MORNING AND 5 MILLILITER BEFORE BEDTIME
     Dates: start: 20191024
  2. ALBUTEROL [Concomitant]
     Active Substance: ALBUTEROL
     Indication: Product used for unknown indication
     Dosage: NEBULIZER
  3. BUDESONIDE [Concomitant]
     Active Substance: BUDESONIDE
     Indication: Product used for unknown indication
     Dosage: 0.5 MILLIGRAM/2
  4. CLONAZEPAM [Concomitant]
     Active Substance: CLONAZEPAM
     Indication: Product used for unknown indication
     Dosage: UNK
  5. IPRATROPIUM BROMIDE [Concomitant]
     Active Substance: IPRATROPIUM BROMIDE
     Indication: Product used for unknown indication
  6. POTASSIUM CITRATE AND CITRIC ACID [Concomitant]
     Active Substance: CITRIC ACID MONOHYDRATE\POTASSIUM CITRATE
     Indication: Product used for unknown indication
     Dosage: UNK
  7. LEVETIRACETAM [Concomitant]
     Active Substance: LEVETIRACETAM
     Indication: Product used for unknown indication
     Dosage: UNK
  8. PHOSPHA 250 NEUTRAL [Concomitant]
     Active Substance: POTASSIUM PHOSPHATE, MONOBASIC\SODIUM PHOSPHATE, DIBASIC, ANHYDROUS\SODIUM PHOSPHATE, MONOBASIC, MON
     Indication: Product used for unknown indication
     Dosage: UNK
  9. PREDNISOLONE [Concomitant]
     Active Substance: PREDNISOLONE
     Indication: Product used for unknown indication
     Dosage: UNK
  10. SCOPOLAMINE DISPERSA [Concomitant]
     Indication: Product used for unknown indication
     Dosage: 1 MILLIGRAM/3 DAY
  11. SODIUM CHLORIDE [Concomitant]
     Active Substance: SODIUM CHLORIDE
     Indication: Product used for unknown indication
     Dosage: NEBULIZER

REACTIONS (1)
  - Death [Fatal]

NARRATIVE: CASE EVENT DATE: 20251001
